FAERS Safety Report 9233842 (Version 1)
Quarter: 2013Q2

REPORT INFORMATION
  Report Type: Spontaneous
  Country: US (occurrence: US)
  Receive Date: 20130416
  Receipt Date: 20130416
  Transmission Date: 20140414
  Serious: No
  Sender: FDA-Public Use
  Company Number: US-BANPHARM-20120089

PATIENT
  Age: 83 Year
  Sex: Female
  Weight: 70.45 kg

DRUGS (12)
  1. ALEVE LIQUID GELS 220 MG [Suspect]
     Indication: PRODUCT USED FOR UNKNOWN INDICATION
     Dosage: 4 DF, ONCE,
     Route: 048
  2. DILTIAZEM [Concomitant]
  3. LISINOPRIL [Concomitant]
  4. PROZAC [Concomitant]
  5. MULTIVITAMIN [Concomitant]
     Route: 048
  6. CALCIUM [Concomitant]
  7. CYMBALTA [Concomitant]
  8. BUPROPION [Concomitant]
  9. ARICEPT [Concomitant]
  10. FLUOXETINE [Concomitant]
  11. CARBIDOPA [Concomitant]
  12. DOMPERIDONE [Concomitant]

REACTIONS (3)
  - Abdominal discomfort [Recovered/Resolved]
  - Incorrect dose administered [Unknown]
  - No adverse event [Unknown]
